FAERS Safety Report 4927046-9 (Version None)
Quarter: 2006Q1

REPORT INFORMATION
  Report Type: 
  Country: None (occurrence: None)
  Receive Date: 20060228
  Receipt Date: 20051012
  Transmission Date: 20060701
  Serious: No
  Sender: FDA-Public Use
  Company Number: US-GLAXOSMITHKLINE-A0578008A

PATIENT
  Age: 52 Year
  Sex: Female

DRUGS (4)
  1. LAMICTAL [Suspect]
     Indication: BIPOLAR DISORDER
     Dosage: 5MG PER DAY
     Route: 048
     Dates: start: 20051011
  2. FEMARA [Concomitant]
  3. LITHIUM [Concomitant]
  4. LUPRON [Concomitant]

REACTIONS (2)
  - LOCAL SWELLING [None]
  - PRURITUS [None]
